FAERS Safety Report 9290203 (Version 4)
Quarter: 2013Q4

REPORT INFORMATION
  Report Type: Spontaneous
  Country: US (occurrence: US)
  Receive Date: 20130515
  Receipt Date: 20131101
  Transmission Date: 20140711
  Serious: Yes (Hospitalization, Other)
  Sender: FDA-Public Use
  Company Number: US-BRISTOL-MYERS SQUIBB COMPANY-18872093

PATIENT
  Age: 55 Year
  Sex: Male
  Weight: 118.36 kg

DRUGS (13)
  1. YERVOY [Suspect]
     Indication: METASTATIC MALIGNANT MELANOMA
     Dosage: LAST DOSE-01MAY13?3 MG/KG, 2ND DOSE: 10APR2013, 3RD DOSE: 01MAY2013
     Route: 042
     Dates: start: 20130320
  2. COPAXONE [Interacting]
     Indication: MULTIPLE SCLEROSIS
     Dosage: INJEC
     Route: 058
  3. GABAPENTIN [Concomitant]
     Dosage: ^HS^
  4. VITAMIN D3 [Concomitant]
     Dosage: 1DF:5000UNITS
  5. FOLIC ACID [Concomitant]
  6. FLAXSEED OIL [Concomitant]
  7. MIRALAX [Concomitant]
  8. DEXAMETHASONE [Concomitant]
     Dosage: CREAM TWICE TO THRICE DAILY.
  9. ACETYLSALICILIC ACID [Concomitant]
  10. NEXIUM [Concomitant]
  11. TUMS [Concomitant]
  12. IBUPROFEN [Concomitant]
  13. CARDIZEM [Concomitant]

REACTIONS (6)
  - Multiple sclerosis relapse [Unknown]
  - Transient ischaemic attack [Unknown]
  - Transaminases increased [Recovered/Resolved]
  - Rash [Recovered/Resolved]
  - Fatigue [Unknown]
  - Drug interaction [Unknown]
